FAERS Safety Report 15479464 (Version 2)
Quarter: 2018Q4

REPORT INFORMATION
  Report Type: Spontaneous
  Country: BR (occurrence: BR)
  Receive Date: 20181009
  Receipt Date: 20181119
  Transmission Date: 20190205
  Serious: Yes (Other)
  Sender: FDA-Public Use
  Company Number: BR-PFIZER INC-2018403272

PATIENT
  Age: 52 Year
  Sex: Female

DRUGS (12)
  1. GLIFAGE [Concomitant]
     Active Substance: METFORMIN HYDROCHLORIDE
  2. OMEPRAZOLE. [Concomitant]
     Active Substance: OMEPRAZOLE
     Dosage: 1 TABLET, UNK
  3. XALATAN [Suspect]
     Active Substance: LATANOPROST
     Indication: OPEN ANGLE GLAUCOMA
     Dosage: 1 DROP EACH EYE EVERY DAY
     Dates: start: 1985
  4. XALACOM [Suspect]
     Active Substance: LATANOPROST\TIMOLOL MALEATE
     Indication: OCULAR DISCOMFORT
  5. INSULINE NPH [Concomitant]
     Active Substance: INSULIN PORK\INSULIN PURIFIED PORK
     Dosage: UNK
     Dates: start: 2012
  6. ENALAPRIL MALEATE. [Concomitant]
     Active Substance: ENALAPRIL MALEATE
     Dosage: 40 MG, DAILY (2 TABLETS IN THE MORNIGN AND 2 TABLETS AT NIGHT)
  7. NOVORAPID [Concomitant]
     Active Substance: INSULIN ASPART
     Dosage: UNK
     Dates: start: 2012
  8. NESINA PIO [Concomitant]
  9. ATENOLOL. [Concomitant]
     Active Substance: ATENOLOL
     Dosage: 25 MG, UNK
  10. FORXIGA [Concomitant]
     Active Substance: DAPAGLIFLOZIN
  11. XALATAN [Suspect]
     Active Substance: LATANOPROST
     Indication: OCULAR DISCOMFORT
  12. XALACOM [Suspect]
     Active Substance: LATANOPROST\TIMOLOL MALEATE
     Indication: OPEN ANGLE GLAUCOMA
     Dosage: 1 DROP EACH EYE EVERY DAY

REACTIONS (8)
  - Hypertension [Unknown]
  - Menopause [Unknown]
  - Arterial haemorrhage [Unknown]
  - Tooth infection [Unknown]
  - Nephrolithiasis [Unknown]
  - Diabetes mellitus [Not Recovered/Not Resolved]
  - Nervousness [Unknown]
  - Fistula [Unknown]

NARRATIVE: CASE EVENT DATE: 2000
